FAERS Safety Report 5275324-9 (Version None)
Quarter: 2007Q1

REPORT INFORMATION
  Report Type: 
  Country: None (occurrence: None)
  Receive Date: 20061213
  Receipt Date: 20060202
  Transmission Date: 20070707
  Serious: Yes (Hospitalization)
  Sender: FDA-Public Use
  Company Number: 2006UW01928

PATIENT
  Age: 40 Year
  Sex: Female

DRUGS (2)
  1. SEROQUEL [Suspect]
     Indication: BIPOLAR DISORDER
     Dosage: 8000 MG;PO
     Route: 048
     Dates: start: 20060119
  2. SEROQUEL [Suspect]
     Indication: MANIA
     Dosage: 8000 MG;PO
     Route: 048
     Dates: start: 20060119

REACTIONS (3)
  - BLOOD CREATINE PHOSPHOKINASE INCREASED [None]
  - COMA [None]
  - INTENTIONAL OVERDOSE [None]
